FAERS Safety Report 6222745-3 (Version None)
Quarter: 2009Q2

REPORT INFORMATION
  Report Type: 
  Country: None (occurrence: None)
  Receive Date: 20090611
  Receipt Date: 20090609
  Transmission Date: 20091009
  Serious: Yes (Hospitalization)
  Sender: FDA-Public Use
  Company Number: A0755708B

PATIENT
  Sex: Female

DRUGS (4)
  1. LAPATINIB [Suspect]
     Dosage: 1500MG PER DAY
     Route: 048
     Dates: start: 20081108
  2. PACLITAXEL [Suspect]
     Dosage: 80MGM2 CYCLIC
     Route: 042
     Dates: start: 20081108
  3. DEXAMETHASONE [Suspect]
     Indication: PREMEDICATION
     Dosage: 10MG PER DAY
     Route: 048
     Dates: start: 20081126, end: 20081126
  4. GLIBENCLAMIDE [Concomitant]
     Dosage: 5MG AT NIGHT
     Route: 048
     Dates: start: 20040101, end: 20081106

REACTIONS (1)
  - HYPERGLYCAEMIA [None]
